FAERS Safety Report 23501179 (Version 1)
Quarter: 2024Q1

REPORT INFORMATION
  Report Type: Spontaneous
  Country: US (occurrence: US)
  Receive Date: 20240208
  Receipt Date: 20240208
  Transmission Date: 20240409
  Serious: No
  Sender: FDA-Public Use
  Company Number: US-PERRIGO-23US003753

PATIENT

DRUGS (3)
  1. CETIRIZINE HYDROCHLORIDE [Suspect]
     Active Substance: CETIRIZINE HYDROCHLORIDE
     Indication: Product used for unknown indication
     Dosage: UNK, UNK
     Route: 048
     Dates: start: 202303
  2. FLUTICASONE [Suspect]
     Active Substance: FLUTICASONE
     Indication: Product used for unknown indication
     Dosage: UNK, UNK
     Route: 045
     Dates: start: 202303
  3. PLAVIX [Concomitant]
     Active Substance: CLOPIDOGREL BISULFATE
     Indication: Product used for unknown indication
     Dosage: UNK, UNK
     Route: 065

REACTIONS (2)
  - Hypersensitivity [Unknown]
  - Drug interaction [Unknown]

NARRATIVE: CASE EVENT DATE: 20230301
